FAERS Safety Report 13699457 (Version 2)
Quarter: 2017Q3

REPORT INFORMATION
  Report Type: Report from Study
  Country: CO (occurrence: CO)
  Receive Date: 20170628
  Receipt Date: 20170816
  Transmission Date: 20171127
  Serious: Yes (Death, Hospitalization)
  Sender: FDA-Public Use
  Company Number: CO-ROCHE-1920101

PATIENT
  Age: 75 Year
  Sex: Female

DRUGS (2)
  1. HERCEPTIN [Suspect]
     Active Substance: TRASTUZUMAB
     Indication: BREAST CANCER
     Dosage: 384 MG EVERY 21 DAYS
     Route: 042
     Dates: start: 20160304, end: 20161026
  2. XELODA [Suspect]
     Active Substance: CAPECITABINE
     Indication: COLON CANCER
     Dosage: 42000 MG EVERY 21 DAYS
     Route: 048
     Dates: start: 20160809, end: 20160920

REACTIONS (2)
  - Pulmonary oedema [Unknown]
  - Breast injury [Unknown]

NARRATIVE: CASE EVENT DATE: 20170410
